FAERS Safety Report 8153237-2 (Version None)
Quarter: 2012Q1

REPORT INFORMATION
  Report Type: 
  Country: None (occurrence: None)
  Receive Date: 20120103
  Receipt Date: 20111025
  Transmission Date: 20120608
  Serious: No
  Sender: FDA-Public Use
  Company Number: AE-2011-002729

PATIENT
  Sex: Male

DRUGS (3)
  1. PEGINTERFERON [Concomitant]
  2. RIBAVIRIN [Concomitant]
  3. INCIVEK [Suspect]

REACTIONS (3)
  - PRURITUS [None]
  - RASH [None]
  - OEDEMA PERIPHERAL [None]
